FAERS Safety Report 7542477-9 (Version None)
Quarter: 2011Q2

REPORT INFORMATION
  Report Type: 
  Country: None (occurrence: None)
  Receive Date: 20110613
  Receipt Date: 20110611
  Transmission Date: 20111010
  Serious: Yes (Other)
  Sender: FDA-Public Use
  Company Number: US-PFIZER INC-2011085013

PATIENT
  Age: 66 Year
  Sex: Male
  Weight: 90.703 kg

DRUGS (4)
  1. CHANTIX [Suspect]
     Dosage: 1 MG, 2X/DAY
     Route: 048
     Dates: start: 20110401
  2. NADOLOL [Concomitant]
     Dosage: 40 MG, UNK
  3. CHANTIX [Suspect]
     Indication: SMOKING CESSATION THERAPY
     Dosage: 0.5 MG, 1X/DAY
     Route: 048
     Dates: start: 20110401, end: 20110401
  4. LOVASTATIN [Concomitant]
     Dosage: 20 MG, UNK

REACTIONS (2)
  - CARDIAC FLUTTER [None]
  - EXTRASYSTOLES [None]
